FAERS Safety Report 8569485 (Version 2)
Quarter: 2013Q2

REPORT INFORMATION
  Report Type: Spontaneous
  Country: US (occurrence: US)
  Receive Date: 20120518
  Receipt Date: 20130521
  Transmission Date: 20140414
  Serious: No
  Sender: FDA-Public Use
  Company Number: US-BRISTOL-MYERS SQUIBB COMPANY-16347619

PATIENT
  Age: 39 Year
  Sex: Female

DRUGS (1)
  1. BARACLUDE [Suspect]

REACTIONS (1)
  - Pregnancy [Unknown]
